FAERS Safety Report 9486449 (Version 13)
Quarter: 2020Q2

REPORT INFORMATION
  Report Type: Report from Study
  Country: US (occurrence: US)
  Receive Date: 20130829
  Receipt Date: 20200625
  Transmission Date: 20200714
  Serious: Yes (Hospitalization, Other)
  Sender: FDA-Public Use
  Company Number: US-SANOFI-AVENTIS-2013SA081472

PATIENT
  Age: 58 Year
  Sex: Female

DRUGS (42)
  1. CETIRIZINE [Concomitant]
     Active Substance: CETIRIZINE HYDROCHLORIDE
     Dosage: UNK
  2. ALPRAZOLAM. [Concomitant]
     Active Substance: ALPRAZOLAM
     Dosage: .05 MG,UNK
     Route: 065
  3. VITAMIN D3 [Concomitant]
     Active Substance: CHOLECALCIFEROL
     Dosage: UNK
  4. OMEPRAZOLE. [Concomitant]
     Active Substance: OMEPRAZOLE
  5. TRAMADOL HCL [Concomitant]
     Active Substance: TRAMADOL HYDROCHLORIDE
  6. ALENDRONATE [Concomitant]
     Active Substance: ALENDRONATE SODIUM
  7. TERIFLUNOMIDE. [Suspect]
     Active Substance: TERIFLUNOMIDE
     Dosage: 14 MG,QD
     Route: 048
     Dates: start: 2014
  8. OXYCODONE [Concomitant]
     Active Substance: OXYCODONE
     Dosage: UNK
  9. SINGULAIR [Concomitant]
     Active Substance: MONTELUKAST SODIUM
     Dosage: UNK
  10. CARAFATE [Concomitant]
     Active Substance: SUCRALFATE
     Dosage: 1 G,QD
     Route: 048
  11. CLINDAMYCIN. [Concomitant]
     Active Substance: CLINDAMYCIN
  12. FLUOCINONIDE. [Concomitant]
     Active Substance: FLUOCINONIDE
  13. HYDROCHLOROTHIAZIDE. [Concomitant]
     Active Substance: HYDROCHLOROTHIAZIDE
  14. HYDROCHLOROTHIAZIDE. [Concomitant]
     Active Substance: HYDROCHLOROTHIAZIDE
  15. TERIFLUNOMIDE. [Suspect]
     Active Substance: TERIFLUNOMIDE
     Dosage: 14 MG,QD
     Route: 048
     Dates: start: 20151118
  16. AMLODIPINE [Concomitant]
     Active Substance: AMLODIPINE BESYLATE
     Dosage: UNK
  17. ACTONEL [Concomitant]
     Active Substance: RISEDRONATE SODIUM
     Dosage: UNK
  18. ALIGN [Concomitant]
     Active Substance: BIFIDOBACTERIUM LONGUM SUBSP. INFANTIS
     Dosage: UNK
  19. AMOXICILLIN. [Concomitant]
     Active Substance: AMOXICILLIN
     Dosage: UNK UNK,UNK
     Route: 065
  20. KETOCONAZOLE. [Concomitant]
     Active Substance: KETOCONAZOLE
  21. FENOFIBRIC ACID. [Concomitant]
     Active Substance: FENOFIBRIC ACID
  22. MELOXICAM. [Concomitant]
     Active Substance: MELOXICAM
  23. TERIFLUNOMIDE. [Suspect]
     Active Substance: TERIFLUNOMIDE
     Indication: MULTIPLE SCLEROSIS
     Dosage: 14 MG,QD
     Route: 048
     Dates: start: 20130726
  24. TERIFLUNOMIDE. [Suspect]
     Active Substance: TERIFLUNOMIDE
     Dosage: 14 MG,QD
     Route: 048
  25. TERIFLUNOMIDE. [Suspect]
     Active Substance: TERIFLUNOMIDE
     Dosage: 14 MG,QD
     Route: 048
  26. ZOLPIDEM [Concomitant]
     Active Substance: ZOLPIDEM TARTRATE
     Indication: SLEEP DISORDER
     Dosage: 10 MG,QH
     Route: 065
  27. MUCINEX [Concomitant]
     Active Substance: GUAIFENESIN
     Dosage: UNK
  28. SUCRAFATE [Concomitant]
     Active Substance: SUCRALFATE
  29. NORVASC [Concomitant]
     Active Substance: AMLODIPINE BESYLATE
  30. DULOXETINE HYDROCHLORIDE. [Concomitant]
     Active Substance: DULOXETINE HYDROCHLORIDE
     Dosage: UNK
  31. ZOLOFT [Concomitant]
     Active Substance: SERTRALINE HYDROCHLORIDE
     Dosage: 100 MG,QD
     Route: 048
  32. XANAX [Concomitant]
     Active Substance: ALPRAZOLAM
  33. LANSOPRAZOLE. [Concomitant]
     Active Substance: LANSOPRAZOLE
     Dosage: 1 DF,HS
     Route: 048
  34. LISINOPRIL. [Suspect]
     Active Substance: LISINOPRIL
     Indication: BLOOD PRESSURE MEASUREMENT
     Dosage: UNK UNK,QD
     Route: 065
  35. ATENOLOL. [Concomitant]
     Active Substance: ATENOLOL
     Indication: BLOOD PRESSURE MEASUREMENT
     Dosage: 50 MG,QD
     Route: 065
  36. ESOMEPRAZOLE. [Concomitant]
     Active Substance: ESOMEPRAZOLE MAGNESIUM
     Dosage: UNK
  37. TIZANIDINE. [Concomitant]
     Active Substance: TIZANIDINE
     Dosage: UNK
  38. BUSPIRONE HYDROCHLORIDE. [Concomitant]
     Active Substance: BUSPIRONE HYDROCHLORIDE
     Dosage: UNK
  39. FENOFIBRIC ACID. [Concomitant]
     Active Substance: FENOFIBRIC ACID
     Dosage: UNK UNK,UNK
     Route: 065
  40. MOBIC [Concomitant]
     Active Substance: MELOXICAM
  41. METOPROLOL TARTRATE. [Concomitant]
     Active Substance: METOPROLOL TARTRATE
  42. CYMBALTA [Concomitant]
     Active Substance: DULOXETINE HYDROCHLORIDE

REACTIONS (49)
  - Blood creatinine increased [Recovered/Resolved]
  - Fatigue [Not Recovered/Not Resolved]
  - Asthenia [Unknown]
  - Haematoma [Unknown]
  - Joint injury [Unknown]
  - Infection [Unknown]
  - Diplopia [Not Recovered/Not Resolved]
  - Osteomyelitis [Not Recovered/Not Resolved]
  - Dry skin [Unknown]
  - Tremor [Unknown]
  - Burning sensation [Recovering/Resolving]
  - Burning sensation [Unknown]
  - Cardiac failure congestive [Recovered/Resolved]
  - Fungal infection [Not Recovered/Not Resolved]
  - Knee arthroplasty [Unknown]
  - Fall [Unknown]
  - Tremor [Unknown]
  - Swelling [Unknown]
  - Diarrhoea [Not Recovered/Not Resolved]
  - Chronic kidney disease [Recovered/Resolved]
  - Multiple sclerosis [Unknown]
  - Hyperhidrosis [Not Recovered/Not Resolved]
  - Skin ulcer [Recovering/Resolving]
  - Irritability [Unknown]
  - Overweight [Not Recovered/Not Resolved]
  - Diabetes mellitus [Not Recovered/Not Resolved]
  - Cataract [Unknown]
  - Swollen tongue [Unknown]
  - Product dose omission [Unknown]
  - Malaise [Unknown]
  - Hot flush [Not Recovered/Not Resolved]
  - Chills [Unknown]
  - White blood cell count increased [Unknown]
  - Dyskinesia [Unknown]
  - Cough [Unknown]
  - Dyspnoea [Recovered/Resolved]
  - Optic nerve injury [Unknown]
  - Intestinal obstruction [Unknown]
  - Impaired driving ability [Not Recovered/Not Resolved]
  - Poor quality sleep [Unknown]
  - Ear disorder [Unknown]
  - Nervousness [Not Recovered/Not Resolved]
  - Weight decreased [Unknown]
  - Bedridden [Unknown]
  - Confusional state [Not Recovered/Not Resolved]
  - Fall [Unknown]
  - Sepsis [Unknown]
  - Dandruff [Unknown]
  - Floating patella [Unknown]

NARRATIVE: CASE EVENT DATE: 2013
